FAERS Safety Report 4340085-4 (Version None)
Quarter: 2004Q2

REPORT INFORMATION
  Report Type: 
  Country: None (occurrence: None)
  Receive Date: 20040416
  Receipt Date: 20040412
  Transmission Date: 20050107
  Serious: Yes (Hospitalization)
  Sender: FDA-Public Use
  Company Number: US-JNJFOC-20040402642

PATIENT
  Age: 52 Year
  Sex: Female

DRUGS (9)
  1. DURAGESIC [Suspect]
     Route: 062
  2. LORTAB [Concomitant]
     Route: 049
  3. LORTAB [Concomitant]
     Indication: PAIN
     Route: 049
  4. ATARAX [Concomitant]
     Route: 049
  5. BENZODIAZEPINE [Concomitant]
     Indication: SLEEP DISORDER
     Route: 049
  6. AMBIEN [Concomitant]
     Indication: SLEEP DISORDER
     Route: 049
  7. RESTORIL [Concomitant]
     Indication: SLEEP DISORDER
     Route: 049
  8. KLONOPIN [Concomitant]
     Indication: ANXIETY
     Route: 049
  9. PROTONIX [Concomitant]
     Route: 049

REACTIONS (5)
  - CONTRAST MEDIA REACTION [None]
  - DRUG EFFECT DECREASED [None]
  - HAEMATEMESIS [None]
  - MIGRAINE [None]
  - VASCULAR RUPTURE [None]
